FAERS Safety Report 9700988 (Version 2)
Quarter: 2013Q4

REPORT INFORMATION
  Report Type: Spontaneous
  Country: US (occurrence: US)
  Receive Date: 20131121
  Receipt Date: 20131216
  Transmission Date: 20140711
  Serious: Yes (Death)
  Sender: FDA-Public Use
  Company Number: US-ASTELLAS-2013US011918

PATIENT
  Age: 70 Year
  Sex: Male

DRUGS (17)
  1. XTANDI [Suspect]
     Indication: PROSTATE CANCER METASTATIC
     Dosage: 160 MG, UID/QD
     Route: 048
  2. ZOFRAN                             /00955302/ [Concomitant]
     Indication: NAUSEA
     Dosage: 8 MG, Q8 HOURS
     Route: 048
  3. ZOFRAN                             /00955302/ [Concomitant]
     Indication: VOMITING
  4. PROCHLORPERAZINE MALEATE [Concomitant]
     Indication: NAUSEA
     Dosage: 10 MG, Q6 HOURS
     Route: 048
  5. PROCHLORPERAZINE MALEATE [Concomitant]
     Indication: VOMITING
  6. ALBUTEROL SULFATE [Concomitant]
     Indication: PRODUCT USED FOR UNKNOWN INDICATION
     Dosage: 90 UG/ACTUATION, INHALE TWO PUFFS EVERY 4 -6 HRS
     Route: 045
  7. AZITHROMYCIN [Concomitant]
     Indication: PRODUCT USED FOR UNKNOWN INDICATION
     Dosage: 500 MG, UID/QD
     Route: 048
  8. AZITHROMYCIN [Concomitant]
     Dosage: 250 MG, UID/QD
     Route: 048
  9. PREDNISONE [Concomitant]
     Indication: PRODUCT USED FOR UNKNOWN INDICATION
     Dosage: 5 MG, BID
     Route: 048
  10. VICODIN [Concomitant]
     Indication: PAIN
     Dosage: 5-500 MG, EVERY 4-6 HOURS
     Route: 048
  11. GLUCOPHAGE [Concomitant]
     Indication: PRODUCT USED FOR UNKNOWN INDICATION
     Dosage: 1000 MG, BID
     Route: 048
  12. PROVENTIL HFA                      /00139502/ [Concomitant]
     Indication: PRODUCT USED FOR UNKNOWN INDICATION
     Dosage: 90 MCG/ACTUATION, 1 -2 PUFFS TWICE A DAY
     Route: 045
  13. MULTIVITAMIN                       /00097801/ [Concomitant]
     Indication: PRODUCT USED FOR UNKNOWN INDICATION
     Dosage: 1 DF, UID/QD
     Route: 048
  14. ASPIRIN [Concomitant]
     Indication: PRODUCT USED FOR UNKNOWN INDICATION
     Dosage: 81 MG, UID/QD
     Route: 048
  15. NORVASC [Concomitant]
     Indication: PRODUCT USED FOR UNKNOWN INDICATION
     Dosage: 7.5 MG, UID/QD
     Route: 048
  16. LISINOPRIL/HYDROCHLOORTHIAZIDE [Concomitant]
     Indication: PRODUCT USED FOR UNKNOWN INDICATION
     Dosage: 1 DF,20-25 MG, UID/QD
     Route: 048
  17. OXYCODONE [Concomitant]
     Indication: PAIN
     Dosage: 1-2 TABLETS EVERY 4 HOURS
     Route: 048

REACTIONS (1)
  - Prostate cancer metastatic [Fatal]
